FAERS Safety Report 25482266 (Version 1)
Quarter: 2025Q2

REPORT INFORMATION
  Report Type: Spontaneous
  Country: US (occurrence: US)
  Receive Date: 20250626
  Receipt Date: 20250626
  Transmission Date: 20250716
  Serious: Yes (Other)
  Sender: TEVA
  Company Number: US-TEVA-VS-3342551

PATIENT
  Age: 16 Month

DRUGS (6)
  1. BUPROPION [Suspect]
     Active Substance: BUPROPION
     Indication: Depression
     Route: 064
  2. FLUOXETINE [Suspect]
     Active Substance: FLUOXETINE HYDROCHLORIDE
     Indication: Depression
     Route: 064
  3. KETAMINE [Suspect]
     Active Substance: KETAMINE
     Indication: Depression
     Route: 064
  4. LITHIUM [Suspect]
     Active Substance: LITHIUM
     Indication: Depression
     Route: 064
  5. ESKETAMINE [Suspect]
     Active Substance: ESKETAMINE
     Indication: Depression
     Route: 064
  6. PRAZOSIN [Suspect]
     Active Substance: PRAZOSIN
     Indication: Nightmare
     Route: 064

REACTIONS (3)
  - Speech disorder developmental [Unknown]
  - Foetal exposure during pregnancy [Unknown]
  - Gross motor delay [Unknown]
